FAERS Safety Report 4628748-4 (Version None)
Quarter: 2005Q1

REPORT INFORMATION
  Report Type: 
  Country: None (occurrence: None)
  Receive Date: 20050107
  Receipt Date: 20040917
  Transmission Date: 20050727
  Serious: No
  Sender: FDA-Public Use
  Company Number: 234734K04USA

PATIENT
  Age: 55 Year
  Sex: Female

DRUGS (2)
  1. REBIF [Suspect]
     Indication: MULTIPLE SCLEROSIS
     Dosage: 44 MCG, 3 IN 1 WEEKS
     Dates: start: 20040630
  2. LEXAPRO [Concomitant]

REACTIONS (10)
  - ANAEMIA [None]
  - ASTHENIA [None]
  - BLISTER [None]
  - CONTUSION [None]
  - DEPRESSION [None]
  - IRRITABILITY [None]
  - MYALGIA [None]
  - NERVOUSNESS [None]
  - PURPURA [None]
  - RASH VESICULAR [None]
